FAERS Safety Report 8785150 (Version 2)
Quarter: 2012Q4

REPORT INFORMATION
  Report Type: 
  Country: ES (occurrence: ES)
  Receive Date: 20120914
  Receipt Date: 20121206
  Transmission Date: 20130627
  Serious: Yes (Death, Life-Threatening, Hospitalization, Other)
  Sender: FDA-Public Use
  Company Number: ES-MILLENNIUM PHARMACEUTICALS, INC.-2012-04889

PATIENT

DRUGS (9)
  1. VELCADE [Suspect]
     Indication: MULTIPLE MYELOMA
     Dosage: UNK
     Route: 065
     Dates: start: 20081006, end: 20081113
  2. PREDNISONE [Suspect]
     Indication: MULTIPLE MYELOMA
     Dosage: UNK
     Route: 065
     Dates: start: 20120314, end: 20120422
  3. BENDAMUSTINE [Suspect]
     Indication: MULTIPLE MYELOMA
     Dosage: UNK
     Route: 065
     Dates: start: 20120314, end: 20120422
  4. CEFOTAXIMA [Concomitant]
     Dosage: UNK
     Dates: start: 20120412, end: 20120423
  5. ERYTHROMYCIN [Concomitant]
     Dosage: UNK
     Dates: start: 20120305
  6. LEVOFLOXACIN [Concomitant]
     Dosage: UNK
     Dates: start: 20120410
  7. NEOMYCIN [Concomitant]
     Dosage: UNK
     Dates: start: 20120326
  8. TOBRAMYCIN [Concomitant]
     Dosage: UNK
     Dates: start: 20120305
  9. ACENOCOUMAROL [Concomitant]
     Dosage: UNK
     Dates: start: 20120305

REACTIONS (3)
  - Lung disorder [Fatal]
  - Back pain [Fatal]
  - Dyspnoea [Fatal]
